FAERS Safety Report 17892285 (Version 1)
Quarter: 2020Q2

REPORT INFORMATION
  Report Type: Spontaneous
  Country: BR (occurrence: BR)
  Receive Date: 20200612
  Receipt Date: 20200612
  Transmission Date: 20200714
  Serious: Yes (Other)
  Sender: FDA-Public Use
  Company Number: BR-009507513-2002BRA007353

PATIENT
  Age: 83 Year
  Sex: Female
  Weight: 55.7 kg

DRUGS (2)
  1. CLOBETASOL PROPIONATE. [Concomitant]
     Active Substance: CLOBETASOL PROPIONATE
     Dosage: UNK
     Dates: start: 20200114, end: 20200212
  2. KEYTRUDA [Suspect]
     Active Substance: PEMBROLIZUMAB
     Indication: COLON CANCER
     Dosage: 200 MG EVERY 28 DAYS
     Route: 042
     Dates: start: 20190911, end: 20200212

REACTIONS (4)
  - Inappropriate schedule of product administration [Unknown]
  - Hypothyroidism [Unknown]
  - Product use in unapproved indication [Unknown]
  - Eczema [Recovered/Resolved]

NARRATIVE: CASE EVENT DATE: 20190911
